FAERS Safety Report 20723633 (Version 1)
Quarter: 2022Q2

REPORT INFORMATION
  Report Type: Report from Study
  Country: US (occurrence: US)
  Receive Date: 20220419
  Receipt Date: 20220419
  Transmission Date: 20220721
  Serious: No
  Sender: FDA-Public Use
  Company Number: US-NOVARTISTESTPH-NVSC2022US090243

PATIENT
  Sex: Male
  Weight: 72.57 kg

DRUGS (1)
  1. ENTRESTO [Suspect]
     Active Substance: SACUBITRIL\VALSARTAN
     Indication: Cardiac failure congestive
     Dosage: 0.5 DOSAGE FORM, BID, 24/26 MG (MILLIGRAM)
     Route: 048
     Dates: start: 202112

REACTIONS (2)
  - Hypersensitivity [Not Recovered/Not Resolved]
  - Dry throat [Not Recovered/Not Resolved]
